FAERS Safety Report 10314240 (Version 2)
Quarter: 2014Q1

REPORT INFORMATION
  Report Type: Spontaneous
  Country: US (occurrence: None)
  Receive Date: 20120817
  Receipt Date: 20130815
  Transmission Date: 20141002
  Serious: Yes (Other)
  Sender: FDA-Public Use
  Company Number: ADR-2012-00227

PATIENT
  Sex: Male

DRUGS (2)
  1. LIORESAL INTRATHECAL (BACLOFEN INJECTION)2,000MCG/ML [Suspect]
     Indication: MUSCLE SPASTICITY
  2. LIORESAL INTRATHECAL (BACLOFEN INJECTION)2,000MCG/ML [Suspect]

REACTIONS (7)
  - Underdose [None]
  - Incorrect route of drug administration [None]
  - Urinary tract infection [None]
  - Implant site extravasation [None]
  - Hypertonia [None]
  - Muscle spasms [None]
  - Muscle spasticity [None]
